FAERS Safety Report 22366684 (Version 7)
Quarter: 2024Q1

REPORT INFORMATION
  Report Type: Spontaneous
  Country: US (occurrence: US)
  Receive Date: 20230525
  Receipt Date: 20240125
  Transmission Date: 20240410
  Serious: No
  Sender: FDA-Public Use
  Company Number: US-PFIZER INC-PV202300088824

PATIENT
  Age: 55 Year
  Sex: Female

DRUGS (1)
  1. IBRANCE [Suspect]
     Active Substance: PALBOCICLIB
     Dosage: 125 MG

REACTIONS (19)
  - Fatigue [Recovering/Resolving]
  - Oral pain [Not Recovered/Not Resolved]
  - Candida infection [Unknown]
  - Dizziness [Unknown]
  - Diarrhoea [Unknown]
  - Constipation [Unknown]
  - Taste disorder [Unknown]
  - White blood cell count decreased [Unknown]
  - Tongue geographic [Unknown]
  - Dyschezia [Not Recovered/Not Resolved]
  - Gastrointestinal disorder [Not Recovered/Not Resolved]
  - Sensitive skin [Not Recovered/Not Resolved]
  - Glossodynia [Recovering/Resolving]
  - Swollen tongue [Recovering/Resolving]
  - Abdominal discomfort [Unknown]
  - Hypersensitivity [Unknown]
  - Nausea [Unknown]
  - Madarosis [Unknown]
  - Product dose omission issue [Unknown]
